FAERS Safety Report 9127031 (Version 1)
Quarter: 2013Q1

REPORT INFORMATION
  Report Type: Report from Study
  Country: CO (occurrence: CO)
  Receive Date: 20130122
  Receipt Date: 20130122
  Transmission Date: 20140127
  Serious: Yes (Life-Threatening, Other)
  Sender: FDA-Public Use
  Company Number: CO-ROCHE-1181455

PATIENT
  Sex: 0

DRUGS (1)
  1. TOCILIZUMAB [Suspect]
     Indication: RHEUMATOID ARTHRITIS
     Route: 042
     Dates: start: 20120810

REACTIONS (3)
  - Renal cancer [Recovered/Resolved]
  - Pulmonary thrombosis [Recovered/Resolved]
  - Subarachnoid haemorrhage [Recovered/Resolved]
